FAERS Safety Report 17984312 (Version 2)
Quarter: 2022Q1

REPORT INFORMATION
  Report Type: Report from Study
  Country: GT (occurrence: GT)
  Receive Date: 20200706
  Receipt Date: 20220114
  Transmission Date: 20220423
  Serious: Yes (Life-Threatening, Hospitalization)
  Sender: FDA-Public Use
  Company Number: GT-NOVARTISPH-NVSC2020GT189530

PATIENT
  Age: 62 Year
  Sex: Male

DRUGS (2)
  1. SACUBITRIL\VALSARTAN [Suspect]
     Active Substance: SACUBITRIL\VALSARTAN
     Indication: Product used for unknown indication
     Dosage: 100 MG, BID (ONCE IN MORNING AND IN NIGHT), STARTED APPROXIMATELY 1 YEAR AGO
     Route: 065
  2. EXFORGE HCT [Suspect]
     Active Substance: AMLODIPINE BESYLATE\HYDROCHLOROTHIAZIDE\VALSARTAN
     Indication: Product used for unknown indication
     Dosage: UNK (10/320/25 MG)
     Route: 065
     Dates: start: 202003

REACTIONS (5)
  - COVID-19 [Recovered/Resolved]
  - Near death experience [Unknown]
  - Illness [Unknown]
  - Confusional state [Unknown]
  - Intentional product use issue [Unknown]
